FAERS Safety Report 9460857 (Version 2)
Quarter: 2013Q3

REPORT INFORMATION
  Report Type: Spontaneous
  Country: JP (occurrence: JP)
  Receive Date: 20130816
  Receipt Date: 20130906
  Transmission Date: 20140515
  Serious: Yes (Life-Threatening, Hospitalization)
  Sender: FDA-Public Use
  Company Number: JP-MERCK-1308JPN005894

PATIENT
  Age: 77 Year
  Sex: Male

DRUGS (11)
  1. GLACTIV [Suspect]
     Indication: TYPE 2 DIABETES MELLITUS
     Dosage: 50 MG, QD
     Route: 048
     Dates: start: 20120126, end: 20130307
  2. EQUA [Suspect]
     Indication: TYPE 2 DIABETES MELLITUS
     Dosage: 50 MG, BID
     Route: 048
     Dates: start: 20130308, end: 20130404
  3. EQUA [Suspect]
     Dosage: 100 MG, UNK
     Route: 048
     Dates: start: 20130405, end: 20130731
  4. RECALBON [Concomitant]
     Dosage: UNK
     Dates: start: 20121109, end: 20130801
  5. CRESTOR [Concomitant]
     Dosage: UNK
     Dates: start: 20080807, end: 20130801
  6. GLIMEPIRIDE [Concomitant]
     Dosage: UNK
     Dates: start: 20120111, end: 20130801
  7. EDIROL [Concomitant]
     Dosage: UNK
     Dates: start: 20121109, end: 20130801
  8. BONALON [Concomitant]
     Dosage: UNK
     Route: 048
     Dates: start: 20110206
  9. EPINASTINE [Concomitant]
     Dosage: UNK
     Dates: start: 20130704
  10. HERBS (UNSPECIFIED) [Concomitant]
     Dosage: UNK
     Dates: start: 20130704, end: 20130801
  11. GLUFAST [Concomitant]
     Dosage: UNK
     Dates: start: 2008

REACTIONS (2)
  - Pancreatic carcinoma [Not Recovered/Not Resolved]
  - Autoimmune pancreatitis [Not Recovered/Not Resolved]
